FAERS Safety Report 24722010 (Version 1)
Quarter: 2024Q4

REPORT INFORMATION
  Report Type: Spontaneous
  Country: US (occurrence: None)
  Receive Date: 20241211
  Receipt Date: 20241211
  Transmission Date: 20250114
  Serious: Yes (Disabling)
  Sender: Public
  Company Number: None

PATIENT
  Age: 38 Year
  Sex: Female
  Weight: 59.85 kg

DRUGS (5)
  1. QULIPTA [Suspect]
     Active Substance: ATOGEPANT
     Indication: Migraine
     Dosage: OTHER QUANTITY : 1 TABLET(S);?FREQUENCY : DAILY;?
     Route: 048
     Dates: start: 20220218, end: 20241120
  2. EMGALITY [Suspect]
     Active Substance: GALCANEZUMAB-GNLM
  3. SUMATRIPTAN [Concomitant]
     Active Substance: SUMATRIPTAN
  4. NAPROXEN [Concomitant]
     Active Substance: NAPROXEN
  5. VITAMINS [Concomitant]
     Active Substance: VITAMINS

REACTIONS (2)
  - Dysphemia [None]
  - Adverse drug reaction [None]

NARRATIVE: CASE EVENT DATE: 20230129
